FAERS Safety Report 7672233-2 (Version None)
Quarter: 2011Q3

REPORT INFORMATION
  Report Type: 
  Country: None (occurrence: None)
  Receive Date: 20110809
  Receipt Date: 20110727
  Transmission Date: 20111222
  Serious: Yes (Other)
  Sender: FDA-Public Use
  Company Number: PHHY2011US68709

PATIENT
  Age: 63 Year
  Sex: Female

DRUGS (2)
  1. TOBI [Suspect]
     Dosage: 300 MG, TWICE DAILY VIA NEBULIZER IN A CYCLE OF 28 DAYS ON AND 28 DAYS OFF
     Dates: start: 20080701
  2. PULMOZYME [Concomitant]

REACTIONS (3)
  - UPPER RESPIRATORY TRACT INFECTION [None]
  - HAEMOPTYSIS [None]
  - LUNG INFECTION [None]
